FAERS Safety Report 5957912-7 (Version None)
Quarter: 2008Q4

REPORT INFORMATION
  Report Type: 
  Country: None (occurrence: None)
  Receive Date: 20081117
  Receipt Date: 20081110
  Transmission Date: 20090506
  Serious: Yes (Death)
  Sender: FDA-Public Use
  Company Number: B0545781A

PATIENT
  Age: 44 Year
  Sex: Male

DRUGS (2)
  1. MELPHALAN TABLET (GENERIC) (MELPHALAN) [Suspect]
     Indication: AMYLOIDOSIS
     Dosage: ORAL
     Route: 048
  2. CANCER CHEMOTHERAPY [Concomitant]

REACTIONS (2)
  - CYTOGENETIC ABNORMALITY [None]
  - MYELODYSPLASTIC SYNDROME [None]
